FAERS Safety Report 11393729 (Version 8)
Quarter: 2015Q4

REPORT INFORMATION
  Report Type: Spontaneous
  Country: US (occurrence: US)
  Receive Date: 20150819
  Receipt Date: 20151125
  Transmission Date: 20160304
  Serious: Yes (Death, Hospitalization)
  Sender: FDA-Public Use
  Company Number: US-ROCHE-1623224

PATIENT
  Age: 89 Year
  Sex: Male
  Weight: 98 kg

DRUGS (14)
  1. LISINOPRIL. [Concomitant]
     Active Substance: LISINOPRIL
     Indication: HYPERTENSION
     Route: 048
     Dates: end: 20150805
  2. CARVEDILOL. [Concomitant]
     Active Substance: CARVEDILOL
  3. APAP [Concomitant]
     Active Substance: ACETAMINOPHEN
  4. LEVOTHYROXINE. [Concomitant]
     Active Substance: LEVOTHYROXINE
  5. INSULIN [Concomitant]
     Active Substance: INSULIN NOS
  6. ATORVASTATIN [Concomitant]
     Active Substance: ATORVASTATIN
  7. ACTIVASE [Suspect]
     Active Substance: ALTEPLASE
     Route: 042
     Dates: start: 20150805, end: 20150805
  8. ASPIRIN. [Concomitant]
     Active Substance: ASPIRIN
  9. ALBUTEROL/IPRATROPIUM [Concomitant]
     Active Substance: ALBUTEROL\IPRATROPIUM
  10. ACTIVASE [Suspect]
     Active Substance: ALTEPLASE
     Indication: CEREBROVASCULAR ACCIDENT
     Dosage: OVER 60 MINUTES
     Route: 065
     Dates: start: 20150804
  11. CYANOCOBALAMIN. [Concomitant]
     Active Substance: CYANOCOBALAMIN
  12. LANTUS [Concomitant]
     Active Substance: INSULIN GLARGINE
  13. DONEPEZIL. [Concomitant]
     Active Substance: DONEPEZIL
     Indication: DEMENTIA
     Route: 048
     Dates: end: 20150805
  14. ACTIVASE [Suspect]
     Active Substance: ALTEPLASE
     Route: 042
     Dates: start: 20150805, end: 20150805

REACTIONS (5)
  - Hyperhidrosis [Unknown]
  - Mental status changes [Unknown]
  - Hypotension [Fatal]
  - Haemorrhagic transformation stroke [Fatal]
  - Product quality issue [Unknown]

NARRATIVE: CASE EVENT DATE: 20150804
